FAERS Safety Report 6167033-9 (Version None)
Quarter: 2009Q2

REPORT INFORMATION
  Report Type: 
  Country: None (occurrence: None)
  Receive Date: 20090424
  Receipt Date: 20090414
  Transmission Date: 20091009
  Serious: Yes (Hospitalization)
  Sender: FDA-Public Use
  Company Number: CH-PFIZER INC-2009198811

PATIENT

DRUGS (12)
  1. LYRICA [Suspect]
     Dosage: 300 MG, 1X/DAY
     Dates: start: 20081201
  2. TEMGESIC ^ESSEX PHARMA^ [Interacting]
     Dosage: 0.3 MG, 1X/DAY
     Route: 060
     Dates: start: 20090101
  3. SEROQUEL [Interacting]
  4. CIPRALEX [Concomitant]
     Dosage: 10 MG, 1X/DAY
     Route: 048
  5. LASIX [Concomitant]
     Dosage: 80 MG, 1X/DAY
     Route: 042
  6. ALDACTONE [Concomitant]
     Dosage: 25 MG, 1X/DAY
     Route: 048
  7. DILTIAZEM [Concomitant]
     Dosage: 180 MG, 1X/DAY
     Route: 048
  8. CLEXANE [Concomitant]
     Dosage: 40 MG, 1X/DAY
     Route: 058
  9. INSULIN [Concomitant]
     Route: 058
  10. PREDNISONE [Concomitant]
     Dosage: 15 MG, 1X/DAY
     Route: 048
  11. PULMICORT-100 [Concomitant]
     Dosage: 400 UG, 1X/DAY
     Route: 055
  12. DOSPIR [Concomitant]
     Route: 055

REACTIONS (2)
  - RESPIRATORY ACIDOSIS [None]
  - RESPIRATORY DEPRESSION [None]
